FAERS Safety Report 14172274 (Version 1)
Quarter: 2017Q4

REPORT INFORMATION
  Report Type: Spontaneous
  Country: US (occurrence: None)
  Receive Date: 20171108
  Receipt Date: 20171108
  Transmission Date: 20180321
  Serious: No
  Sender: FDA-Public Use
  Company Number: None

PATIENT
  Age: 53 Year
  Sex: Male

DRUGS (1)
  1. HUMIRA [Suspect]
     Active Substance: ADALIMUMAB
     Indication: PSORIATIC ARTHROPATHY
     Dosage: 40MG EVERY 2 WEEKS
     Route: 058
     Dates: start: 20161022

REACTIONS (2)
  - Therapy non-responder [None]
  - Herpes virus infection [None]

NARRATIVE: CASE EVENT DATE: 20171107
